FAERS Safety Report 20489525 (Version 1)
Quarter: 2022Q1

REPORT INFORMATION
  Report Type: Spontaneous
  Country: IN (occurrence: IN)
  Receive Date: 20220218
  Receipt Date: 20220218
  Transmission Date: 20220423
  Serious: Yes (Death)
  Sender: FDA-Public Use
  Company Number: IN-PFIZER INC-2020053815

PATIENT
  Age: 57 Year
  Sex: Male
  Weight: 51.9 kg

DRUGS (1)
  1. SUTENT [Suspect]
     Active Substance: SUNITINIB MALATE
     Indication: Gastrointestinal stromal tumour
     Dosage: 50 MG, CYCLIC (ONCE A DAY 1-0-0, 4 WEEKS ON, 2 WEEKS OFF)
     Route: 048
     Dates: start: 20200120

REACTIONS (6)
  - Death [Fatal]
  - Pain [Recovering/Resolving]
  - Dysphagia [Recovering/Resolving]
  - Decreased appetite [Unknown]
  - Asthenia [Unknown]
  - Abdominal pain upper [Unknown]

NARRATIVE: CASE EVENT DATE: 20201001
